FAERS Safety Report 5766593-7 (Version None)
Quarter: 2008Q2

REPORT INFORMATION
  Report Type: 
  Country: None (occurrence: None)
  Receive Date: 20080610
  Receipt Date: 20080610
  Transmission Date: 20081010
  Serious: Yes (Death)
  Sender: FDA-Public Use
  Company Number: None

PATIENT
  Age: 80 Year
  Sex: Female
  Weight: 55.7924 kg

DRUGS (1)
  1. ALTEPLASE -TPA- 100 MG GENENTECH [Suspect]
     Indication: CEREBROVASCULAR ACCIDENT
     Dosage: 58 MG ONCE IV DRIP
     Route: 041
     Dates: start: 20080502, end: 20080502

REACTIONS (2)
  - HAEMORRHAGIC INFARCTION [None]
  - PETECHIAE [None]
